FAERS Safety Report 17476560 (Version 1)
Quarter: 2020Q1

REPORT INFORMATION
  Report Type: Spontaneous
  Country: FR (occurrence: FR)
  Receive Date: 20200228
  Receipt Date: 20200228
  Transmission Date: 20200409
  Serious: Yes (Hospitalization, Other)
  Sender: FDA-Public Use
  Company Number: FR-ACTELION-A-CH2020-202238

PATIENT
  Age: 14 Month
  Sex: Male

DRUGS (6)
  1. SPIRONOLACTONE. [Concomitant]
     Active Substance: SPIRONOLACTONE
     Indication: DIURETIC THERAPY
  2. BOSENTAN. [Suspect]
     Active Substance: BOSENTAN
     Indication: PULMONARY ARTERIAL HYPERTENSION
     Route: 048
  3. FUROSEMIDE. [Concomitant]
     Active Substance: FUROSEMIDE
     Indication: DIURETIC THERAPY
  4. ASPIRIN. [Concomitant]
     Active Substance: ASPIRIN
     Dosage: 5 MG/KG, QD
  5. BOSENTAN. [Suspect]
     Active Substance: BOSENTAN
     Dosage: 4 MG/KG, QD
     Route: 048
  6. WARFARIN [Concomitant]
     Active Substance: WARFARIN
     Indication: ANTICOAGULANT THERAPY

REACTIONS (12)
  - Tricuspid valve replacement [Unknown]
  - Tricuspid valve stenosis [Recovered/Resolved]
  - Pyrexia [Recovered/Resolved]
  - Tricuspid valve incompetence [Unknown]
  - Furuncle [Unknown]
  - Endocarditis [Recovered/Resolved]
  - Cardiac valve vegetation [Recovered/Resolved]
  - Degenerative tricuspid valve disease [Recovered/Resolved]
  - Diarrhoea [Recovered/Resolved]
  - Right ventricular failure [Unknown]
  - Atrial septal defect repair [Unknown]
  - Staphylococcal infection [Recovered/Resolved]

NARRATIVE: CASE EVENT DATE: 2013
